FAERS Safety Report 17206505 (Version 3)
Quarter: 2020Q1

REPORT INFORMATION
  Report Type: Spontaneous
  Country: US (occurrence: US)
  Receive Date: 20191227
  Receipt Date: 20200217
  Transmission Date: 20200409
  Serious: Yes (Death, Life-Threatening, Hospitalization, Other)
  Sender: FDA-Public Use
  Company Number: US-ACCORD-167135

PATIENT
  Age: 46 Year
  Sex: Male

DRUGS (7)
  1. CYTARABINE/CYTARABINE HYDROCHLORIDE/CYTARABINE OCFOSFATE [Suspect]
     Active Substance: CYTARABINE
     Indication: ACUTE LYMPHOCYTIC LEUKAEMIA
     Dosage: EVERY MONDAY-WEDNESDAY-FRIDAY
     Route: 037
  2. METHOTREXATE. [Suspect]
     Active Substance: METHOTREXATE
     Indication: ACUTE LYMPHOCYTIC LEUKAEMIA
     Dosage: METHOTREXATE (PF) 12.5MG IN NACL 0.9% (PF) VIA LP EVERY MONDAY-WEDNESDAY-FRIDAY
     Route: 037
  3. HYDROCORTISONE. [Suspect]
     Active Substance: HYDROCORTISONE
     Indication: ACUTE LYMPHOCYTIC LEUKAEMIA
     Dosage: EVERY MONDAY-WEDNESDAY-FRIDAY
     Route: 037
  4. PANTOPRAZOLE [Suspect]
     Active Substance: PANTOPRAZOLE
     Indication: PROPHYLAXIS
  5. PREDNISONE. [Concomitant]
     Active Substance: PREDNISONE
     Indication: GRAFT VERSUS HOST DISEASE
  6. PHENOXYMETHYLPENICILLIN [Suspect]
     Active Substance: PENICILLIN V
     Indication: PROPHYLAXIS
  7. SODIUM CHLORIDE. [Concomitant]
     Active Substance: SODIUM CHLORIDE
     Dosage: STRENGTH: 0.9%
     Route: 037

REACTIONS (10)
  - Paralysis [Recovering/Resolving]
  - Encephalopathy [Recovered/Resolved]
  - Respiratory failure [Recovered/Resolved]
  - Hypotension [Recovering/Resolving]
  - Drug level increased [Recovered/Resolved]
  - Acute kidney injury [Unknown]
  - Pancytopenia [Unknown]
  - Diarrhoea [Unknown]
  - Multi-organ disorder [Unknown]
  - Unresponsive to stimuli [Recovered/Resolved]
